FAERS Safety Report 7371616-8 (Version None)
Quarter: 2011Q1

REPORT INFORMATION
  Report Type: 
  Country: None (occurrence: None)
  Receive Date: 20110324
  Receipt Date: 20110302
  Transmission Date: 20110831
  Serious: Yes (Hospitalization, Other)
  Sender: FDA-Public Use
  Company Number: GB-PFIZER INC-GBWYE603208MAY07

PATIENT
  Age: 9 Year
  Sex: Female

DRUGS (6)
  1. PARACETAMOL [Suspect]
     Indication: MENINGOCOCCAL SEPSIS
     Route: 048
  2. CEFTRIAXONE SODIUM [Suspect]
     Indication: PYREXIA
  3. PARACETAMOL [Suspect]
     Indication: PYREXIA
  4. IBUPROFEN [Suspect]
     Indication: PYREXIA
  5. CEFTRIAXONE SODIUM [Suspect]
     Indication: MENINGOCOCCAL SEPSIS
     Route: 042
  6. IBUPROFEN [Suspect]
     Indication: MENINGOCOCCAL SEPSIS
     Route: 048

REACTIONS (8)
  - MEDICATION ERROR [None]
  - HYDRONEPHROSIS [None]
  - RENAL PAPILLARY NECROSIS [None]
  - URETERIC OBSTRUCTION [None]
  - HYDROURETER [None]
  - POLYURIA [None]
  - RENAL FAILURE ACUTE [None]
  - ACCIDENTAL OVERDOSE [None]
